FAERS Safety Report 18915957 (Version 1)
Quarter: 2021Q1

REPORT INFORMATION
  Report Type: Spontaneous
  Country: CN (occurrence: CN)
  Receive Date: 20210219
  Receipt Date: 20210219
  Transmission Date: 20210420
  Serious: Yes (Other)
  Sender: FDA-Public Use
  Company Number: CN-GLAXOSMITHKLINE-CNCH2021007234

PATIENT
  Age: 83 Year
  Sex: Male

DRUGS (7)
  1. CEFTRIAXONE SODIUM. [Concomitant]
     Active Substance: CEFTRIAXONE SODIUM
     Indication: INFECTION PROPHYLAXIS
     Dosage: 2G IVGTT QD
     Route: 042
     Dates: start: 20210118, end: 20210121
  2. ALBUMIN HUMAN [Concomitant]
     Active Substance: ALBUMIN HUMAN
     Indication: SUPPLEMENTATION THERAPY
     Dosage: 10G/50ML IVGTT
     Route: 042
     Dates: end: 20210120
  3. SODIUM CHLORIDE. [Concomitant]
     Active Substance: SODIUM CHLORIDE
     Indication: PRODUCT USED FOR UNKNOWN INDICATION
     Dosage: 2ML
     Route: 042
     Dates: start: 20210118, end: 20210127
  4. NADROPARIN CALCIUM [Suspect]
     Active Substance: NADROPARIN CALCIUM
     Indication: THROMBOSIS PROPHYLAXIS
     Dosage: 2050.000000
     Route: 058
     Dates: start: 20210118, end: 20210130
  5. GLUCOSE [Suspect]
     Active Substance: DEXTROSE
     Indication: FLUID REPLACEMENT
     Dosage: 100 ML QD
     Route: 042
     Dates: start: 20210118, end: 20210120
  6. IBUPROFEN. [Suspect]
     Active Substance: IBUPROFEN
     Indication: ANALGESIC THERAPY
     Dosage: 0.800000G BID
     Route: 042
     Dates: start: 20210118, end: 20210127
  7. EUCALYPTOL + LIMONENE + PINENE ENTERIC CAPSULES (CHINESE HERBALS) [Suspect]
     Active Substance: HERBALS
     Indication: SPUTUM ABNORMAL
     Dosage: 0.300000 G THREE TIMES DAILY
     Route: 048
     Dates: start: 20210118, end: 20210130

REACTIONS (1)
  - Hepatic function abnormal [Recovering/Resolving]

NARRATIVE: CASE EVENT DATE: 20210127
